FAERS Safety Report 9312369 (Version 3)
Quarter: 2013Q4

REPORT INFORMATION
  Report Type: Spontaneous
  Country: US (occurrence: None)
  Receive Date: 20130509
  Receipt Date: 20131021
  Transmission Date: 20140711
  Serious: Yes (Other)
  Sender: FDA-Public Use
  Company Number: GAM-122-13-US

PATIENT
  Age: 58 Year
  Sex: Female

DRUGS (12)
  1. OCTAGAM [Suspect]
     Indication: HYPOGAMMAGLOBULINAEMIA
     Dosage: 20 G (1X 1 /MONTH) IV
     Route: 042
     Dates: start: 20130418, end: 20130418
  2. LEVOTHYROXINE [Concomitant]
  3. ACETAMINOPHEN AND OXYCODONE [Concomitant]
  4. DEXLANSOPRAZOLE [Concomitant]
  5. MELOXICAM [Concomitant]
  6. AMITRIPTYLINE [Concomitant]
  7. ESTRADIOL [Concomitant]
  8. DIPHENHYDRAMINE [Concomitant]
  9. LORAZEPAM [Concomitant]
  10. METHYLPREDNISOLONE [Concomitant]
  11. PREDNISOLONE [Concomitant]
  12. ZOLPIDEM [Concomitant]

REACTIONS (19)
  - Headache [None]
  - Meningitis aseptic [None]
  - Pyrexia [None]
  - Oropharyngeal pain [None]
  - Fatigue [None]
  - Dizziness [None]
  - Asthma [None]
  - Lethargy [None]
  - Vertigo [None]
  - Eye pain [None]
  - Confusional state [None]
  - Nausea [None]
  - Cold sweat [None]
  - Muscle tightness [None]
  - Myalgia [None]
  - Sinusitis [None]
  - Diarrhoea [None]
  - Fibromyalgia [None]
  - Dysarthria [None]
